FAERS Safety Report 9516123 (Version 3)
Quarter: 2013Q4

REPORT INFORMATION
  Report Type: Spontaneous
  Country: JP (occurrence: None)
  Receive Date: 20130909
  Receipt Date: 20131105
  Transmission Date: 20140711
  Serious: Yes (Other)
  Sender: FDA-Public Use
  Company Number: ABR_01097_2013

PATIENT
  Age: 44 Year
  Sex: Male
  Weight: 61 kg

DRUGS (4)
  1. GLIADEL [Suspect]
     Indication: MALIGNANT GLIOMA
     Dosage: (38.5 MG 1X INTRACEREBRAL (27MAY2013-1X) THERAPY DATES
     Dates: start: 20130527, end: 20130527
  2. CYMERIN [Concomitant]
  3. ONCOVIN [Concomitant]
  4. PROCARBAZINE HYDROCHLORIDE [Concomitant]

REACTIONS (6)
  - Convulsion [None]
  - Brain oedema [None]
  - Aphasia [None]
  - Hemiplegia [None]
  - Condition aggravated [None]
  - Epilepsy [None]
